FAERS Safety Report 20165305 (Version 8)
Quarter: 2022Q4

REPORT INFORMATION
  Report Type: Report from Study
  Country: FR (occurrence: None)
  Receive Date: 20211209
  Receipt Date: 20221209
  Transmission Date: 20230113
  Serious: Yes (Death, Hospitalization)
  Sender: FDA-Public Use
  Company Number: FR-ROCHE-2956743

PATIENT
  Age: 58 Year
  Sex: Male
  Weight: 62.6 kg

DRUGS (9)
  1. ATEZOLIZUMAB [Suspect]
     Active Substance: ATEZOLIZUMAB
     Indication: Neoplasm
     Dosage: ON 06/OCT/2021, THE PATIENT RECEIVED THE MOST RECENT DOSE OF ATEZOLIZUMAB PRIOR TO THE EVENT
     Route: 041
     Dates: start: 20210309, end: 20211105
  2. CABOZANTINIB [Suspect]
     Active Substance: CABOZANTINIB
     Indication: Neoplasm
     Dosage: ON 20/OCT/2021, THE PATIENT RECEIVED THE MOST RECENT DOSE OF XL184 PRIOR TO THE EVENT.
     Route: 048
     Dates: start: 20210309, end: 20211105
  3. CABOZANTINIB [Suspect]
     Active Substance: CABOZANTINIB
     Indication: Hormone-refractory prostate cancer
  4. FENTANYL [Concomitant]
     Active Substance: FENTANYL
  5. MORPHINE SULFATE [Concomitant]
     Active Substance: MORPHINE SULFATE
  6. ACETAMINOPHEN [Concomitant]
     Active Substance: ACETAMINOPHEN
  7. VOGALENE [Concomitant]
     Active Substance: METOPIMAZINE
  8. PRIMPERAN [Concomitant]
     Active Substance: METOCLOPRAMIDE HYDROCHLORIDE
  9. EBASTINE [Concomitant]
     Active Substance: EBASTINE

REACTIONS (3)
  - Septic shock [Recovered/Resolved]
  - Myocardial ischaemia [Not Recovered/Not Resolved]
  - Malignant neoplasm progression [Fatal]

NARRATIVE: CASE EVENT DATE: 20211020
